FAERS Safety Report 4687958-0 (Version None)
Quarter: 2005Q2

REPORT INFORMATION
  Report Type: 
  Country: None (occurrence: None)
  Receive Date: 20050608
  Receipt Date: 20050527
  Transmission Date: 20051028
  Serious: Yes (Hospitalization, Other)
  Sender: FDA-Public Use
  Company Number: KII-2005-0016757

PATIENT
  Age: 52 Year
  Sex: Female

DRUGS (2)
  1. OXYCONTIN [Suspect]
     Indication: PAIN
  2. SALICYLATES (SALICYLATES) [Suspect]
     Indication: DRUG USE FOR UNKNOWN INDICATION

REACTIONS (10)
  - DYSPHONIA [None]
  - HEART RATE INCREASED [None]
  - INTENTIONAL MISUSE [None]
  - MOANING [None]
  - MORBID THOUGHTS [None]
  - OVERDOSE [None]
  - OXYGEN SATURATION DECREASED [None]
  - PAIN [None]
  - RESPIRATORY RATE INCREASED [None]
  - SOMNOLENCE [None]
